FAERS Safety Report 7226908-X (Version None)
Quarter: 2011Q1

REPORT INFORMATION
  Report Type: 
  Country: None (occurrence: None)
  Receive Date: 20110114
  Receipt Date: 20110111
  Transmission Date: 20110831
  Serious: No
  Sender: FDA-Public Use
  Company Number: US-ROXANE LABORATORIES, INC.-2011-RO-00054RO

PATIENT
  Sex: Female

DRUGS (8)
  1. FENTANYL [Concomitant]
     Indication: PAIN
     Route: 062
  2. MAGNESIUM SUPPLEMENT [Concomitant]
  3. OXYMORPHONE HYDROCHLORIDE [Suspect]
     Indication: BREAKTHROUGH PAIN
     Route: 048
     Dates: start: 20110106
  4. NEURONTIN [Concomitant]
  5. TYLENOL-500 [Concomitant]
     Indication: PAIN
  6. BACTRIM ES [Concomitant]
     Indication: LYME DISEASE
  7. PREMARIN [Concomitant]
  8. IMITREX [Concomitant]

REACTIONS (2)
  - DRUG INEFFECTIVE [None]
  - PRODUCT TASTE ABNORMAL [None]
